FAERS Safety Report 5722491-6 (Version None)
Quarter: 2008Q2

REPORT INFORMATION
  Report Type: 
  Country: None (occurrence: None)
  Receive Date: 20080429
  Receipt Date: 20070806
  Transmission Date: 20081010
  Serious: Yes (Other)
  Sender: FDA-Public Use
  Company Number: US-ASTRAZENECA-2007UW18926

PATIENT
  Age: 28 Year
  Sex: Female
  Weight: 70.3 kg

DRUGS (3)
  1. NEXIUM [Suspect]
     Indication: GASTROINTESTINAL DISORDER
     Route: 048
     Dates: start: 20070803
  2. ALBUTEROL [Concomitant]
  3. ORTHO LO [Concomitant]

REACTIONS (1)
  - VISION BLURRED [None]
